FAERS Safety Report 4553210-7 (Version None)
Quarter: 2005Q1

REPORT INFORMATION
  Report Type: 
  Country: None (occurrence: None)
  Receive Date: 20050113
  Receipt Date: 20050103
  Transmission Date: 20050727
  Serious: Yes (Other)
  Sender: FDA-Public Use
  Company Number: 2005002257

PATIENT
  Sex: Male

DRUGS (2)
  1. DILANTIN KAPSEAL [Suspect]
     Indication: CONVULSION
     Dosage: 200 MG (100 MG, 2 IN 1 D),
  2. PHENOBARBITAL TAB [Suspect]
     Indication: CONVULSION

REACTIONS (3)
  - DEPRESSION [None]
  - GRAND MAL CONVULSION [None]
  - TENDONITIS [None]
